FAERS Safety Report 4416499-0 (Version None)
Quarter: 2004Q3

REPORT INFORMATION
  Report Type: 
  Country: None (occurrence: None)
  Receive Date: 20040802
  Receipt Date: 20040723
  Transmission Date: 20050211
  Serious: Yes (Death)
  Sender: FDA-Public Use
  Company Number: 2004-07-1190

PATIENT
  Age: 6 Year
  Sex: Male

DRUGS (1)
  1. RINDERON ^LIKE CELESTONE SYRUP^ SYRUP [Suspect]
     Dosage: ORAL
     Route: 048
     Dates: start: 20020101

REACTIONS (1)
  - ANAPHYLACTIC SHOCK [None]
